FAERS Safety Report 22180896 (Version 1)
Quarter: 2023Q2

REPORT INFORMATION
  Report Type: Spontaneous
  Country: CN (occurrence: None)
  Receive Date: 20230406
  Receipt Date: 20230406
  Transmission Date: 20230721
  Serious: Yes (Other)
  Sender: FDA-Public Use
  Company Number: CN-ROCHE-3319691

PATIENT
  Age: 44 Year
  Sex: Female

DRUGS (7)
  1. GAZYVA [Suspect]
     Active Substance: OBINUTUZUMAB
     Indication: Follicular lymphoma
     Dosage: GB REGIMEN FOR 4 CYCLES, DAY 1, DAY 8, DAY 15. 01/JUN/2022, 05/JUL/2022, 10/AUG/2022, 09/SEP/2022, 2
     Route: 041
     Dates: start: 20220601
  2. BENDAMUSTINE [Concomitant]
     Active Substance: BENDAMUSTINE
     Indication: Follicular lymphoma
     Dosage: GB REGIMEN FIRST CYCLE, DAY 1- DAY 2
     Route: 041
     Dates: start: 20220601
  3. BENDAMUSTINE [Concomitant]
     Active Substance: BENDAMUSTINE
     Dosage: GB REGIMEN 2-4 CYCLE,  05/JUL/2022, 10/AUG/2022, 09/SEP/2022, 28 DAYS FOR A CYCLE 138 MG DOSE REDUCE
     Route: 041
     Dates: start: 20220705
  4. BENDAMUSTINE [Concomitant]
     Active Substance: BENDAMUSTINE
     Dosage: BEEAM REGIMEN, FROM DAY 8 TO DAY 7
     Dates: start: 20221011
  5. ETOPOSIDE [Concomitant]
     Active Substance: ETOPOSIDE
     Indication: Follicular lymphoma
     Dosage: BEEAM REGIMEN, FROM DAY 6 TO DAY 3
     Dates: start: 20221011
  6. CYTARABINE [Concomitant]
     Active Substance: CYTARABINE
     Indication: Follicular lymphoma
     Dosage: BEEAM REGIMEN, FROM DAY 6 TO DAY 3
     Dates: start: 20221011
  7. MELPHALAN [Concomitant]
     Active Substance: MELPHALAN
     Indication: Follicular lymphoma
     Dosage: BEEAM REGIMEN, DAY 2
     Dates: start: 20221011

REACTIONS (4)
  - Platelet count decreased [Unknown]
  - Febrile infection [Unknown]
  - Myelosuppression [Unknown]
  - COVID-19 [Unknown]
